FAERS Safety Report 5156419-7 (Version None)
Quarter: 2006Q4

REPORT INFORMATION
  Report Type: 
  Country: None (occurrence: None)
  Receive Date: 20061114
  Receipt Date: 20061030
  Transmission Date: 20070319
  Serious: Yes (Hospitalization)
  Sender: FDA-Public Use
  Company Number: 2006VX002142

PATIENT
  Age: 48 Year
  Sex: Female
  Weight: 74.3899 kg

DRUGS (7)
  1. INTERFERON ALFACON-1 [Suspect]
     Indication: HEPATITIS C
     Dosage: 15 UG QD SC
     Route: 058
     Dates: start: 20060106, end: 20061011
  2. RIBAVIRIN [Concomitant]
  3. CARTIA XT [Concomitant]
  4. PROPRANOLOL [Concomitant]
  5. LEXAPRO [Concomitant]
  6. PREDNISONE TAB [Concomitant]
  7. PROCRIT [Concomitant]

REACTIONS (10)
  - CONSTIPATION [None]
  - CYSTITIS INTERSTITIAL [None]
  - GASTROINTESTINAL DISORDER [None]
  - GOUT [None]
  - HAEMOGLOBIN DECREASED [None]
  - HYPERCALCAEMIA [None]
  - KIDNEY INFECTION [None]
  - NAUSEA [None]
  - PULMONARY SARCOIDOSIS [None]
  - VITAMIN D INCREASED [None]
